FAERS Safety Report 14109781 (Version 1)
Quarter: 2017Q4

REPORT INFORMATION
  Report Type: Spontaneous
  Country: US (occurrence: US)
  Receive Date: 20171020
  Receipt Date: 20171020
  Transmission Date: 20180321
  Serious: No
  Sender: FDA-Public Use
  Company Number: US-TEVA-706635USA

PATIENT
  Age: 68 Year
  Sex: Female
  Weight: 61.29 kg

DRUGS (1)
  1. ESTRADIOL. [Suspect]
     Active Substance: ESTRADIOL
     Indication: MUSCLE BUILDING THERAPY
     Route: 065
     Dates: start: 201608, end: 201608

REACTIONS (3)
  - Rash [Recovered/Resolved]
  - Drug hypersensitivity [Not Recovered/Not Resolved]
  - Infection [Recovered/Resolved]

NARRATIVE: CASE EVENT DATE: 20160805
